FAERS Safety Report 10760971 (Version 1)
Quarter: 2015Q1

REPORT INFORMATION
  Report Type: Other
  Country: US (occurrence: US)
  Receive Date: 20150204
  Receipt Date: 20150204
  Transmission Date: 20150721
  Serious: Yes (Death)
  Sender: FDA-Public Use
  Company Number: US-FRI-1000074208

PATIENT
  Age: 81 Year
  Sex: Female

DRUGS (3)
  1. CHLORDIAZEPOXIDE [Suspect]
     Active Substance: CHLORDIAZEPOXIDE
  2. MEMANTINE [Suspect]
     Active Substance: MEMANTINE
  3. DIAZEPAM. [Suspect]
     Active Substance: DIAZEPAM

REACTIONS (1)
  - Drug abuse [Fatal]
